FAERS Safety Report 5412355-X (Version None)
Quarter: 2007Q3

REPORT INFORMATION
  Report Type: 
  Country: None (occurrence: None)
  Receive Date: 20070713
  Receipt Date: 20070420
  Transmission Date: 20080115
  Serious: No
  Sender: FDA-Public Use
  Company Number: 2007SP001455

PATIENT
  Age: 62 Year
  Sex: Female
  Weight: 57.1532 kg

DRUGS (3)
  1. LUNESTA [Suspect]
     Indication: INSOMNIA
     Dosage: 3 MG;HS;ORAL
     Route: 048
     Dates: start: 20070418, end: 20070420
  2. XANAX [Concomitant]
  3. ZOLOFT [Concomitant]

REACTIONS (4)
  - ANXIETY [None]
  - DYSGEUSIA [None]
  - HYPERSENSITIVITY [None]
  - PRURITUS [None]
